FAERS Safety Report 18588178 (Version 3)
Quarter: 2021Q2

REPORT INFORMATION
  Report Type: Spontaneous
  Country: FR (occurrence: FR)
  Receive Date: 20201207
  Receipt Date: 20210507
  Transmission Date: 20210717
  Serious: Yes (Death, Hospitalization, Other)
  Sender: FDA-Public Use
  Company Number: FR-ALLERGAN-2046799US

PATIENT
  Sex: Female

DRUGS (6)
  1. AZATHIOPRINE. [Interacting]
     Active Substance: AZATHIOPRINE
     Indication: COLITIS ULCERATIVE
     Dosage: UNK
  2. AZATHIOPRINE. [Interacting]
     Active Substance: AZATHIOPRINE
     Indication: COLITIS
  3. MESALAZINE UNK [Suspect]
     Active Substance: MESALAMINE
     Indication: COLITIS
     Dosage: UNK
  4. MESALAZINE UNK [Interacting]
     Active Substance: MESALAMINE
     Indication: COLITIS ULCERATIVE
  5. CORTICOSTEROID NOS [Suspect]
     Active Substance: CORTICOSTEROID NOS
     Indication: COLITIS
  6. CORTICOSTEROID NOS [Suspect]
     Active Substance: CORTICOSTEROID NOS
     Indication: COLITIS ULCERATIVE

REACTIONS (6)
  - Cerebral venous thrombosis [Unknown]
  - Enterococcal infection [Unknown]
  - Pregnancy [Unknown]
  - Premature labour [Unknown]
  - Encephalitis cytomegalovirus [Fatal]
  - Labelled drug-drug interaction issue [Unknown]
